FAERS Safety Report 7557420-6 (Version None)
Quarter: 2011Q2

REPORT INFORMATION
  Report Type: 
  Country: None (occurrence: None)
  Receive Date: 20110620
  Receipt Date: 20110607
  Transmission Date: 20111010
  Serious: Yes (Death, Hospitalization, Other)
  Sender: FDA-Public Use
  Company Number: PHHY2011US35173

PATIENT
  Sex: Male

DRUGS (1)
  1. GLEEVEC [Suspect]
     Indication: CHRONIC MYELOID LEUKAEMIA
     Dosage: 600 MG, DAILY
     Route: 048
     Dates: start: 20070911

REACTIONS (7)
  - AGGRESSION [None]
  - PANCYTOPENIA [None]
  - DEMENTIA [None]
  - EATING DISORDER [None]
  - PROSTATE CANCER [None]
  - DEATH [None]
  - DEHYDRATION [None]
